FAERS Safety Report 10693972 (Version 2)
Quarter: 2015Q1

REPORT INFORMATION
  Report Type: Spontaneous
  Country: US (occurrence: US)
  Receive Date: 20150106
  Receipt Date: 20150227
  Transmission Date: 20150721
  Serious: Yes (Death)
  Sender: FDA-Public Use
  Company Number: US-CELGENE-USA-2015010222

PATIENT
  Age: 60 Year
  Sex: Male

DRUGS (2)
  1. AXID [Concomitant]
     Active Substance: NIZATIDINE
     Indication: GASTROOESOPHAGEAL REFLUX DISEASE
     Route: 065
  2. OTEZLA [Suspect]
     Active Substance: APREMILAST
     Indication: PSORIASIS
     Dosage: 60 MILLIGRAM
     Route: 048
     Dates: start: 20140520, end: 20141224

REACTIONS (1)
  - Death [Fatal]

NARRATIVE: CASE EVENT DATE: 20141224
